FAERS Safety Report 21879417 (Version 2)
Quarter: 2023Q1

REPORT INFORMATION
  Report Type: Spontaneous
  Country: JP (occurrence: JP)
  Receive Date: 20230118
  Receipt Date: 20230221
  Transmission Date: 20230418
  Serious: Yes (Disabling, Other)
  Sender: FDA-Public Use
  Company Number: JP-OTSUKA-2023_001118

PATIENT
  Age: 41 Year
  Sex: Female

DRUGS (12)
  1. REXULTI [Suspect]
     Active Substance: BREXPIPRAZOLE
     Indication: Product used for unknown indication
     Dosage: 1 MG/DAY
     Route: 048
     Dates: start: 20181212, end: 20181215
  2. REXULTI [Suspect]
     Active Substance: BREXPIPRAZOLE
     Indication: Product used for unknown indication
     Dosage: 2 MG/DAY
     Route: 048
     Dates: start: 20181216, end: 20181220
  3. PEROSPIRONE HYDROCHLORIDE [Suspect]
     Active Substance: PEROSPIRONE HYDROCHLORIDE
     Indication: Product used for unknown indication
     Dosage: UNK
     Route: 065
     Dates: start: 201812, end: 201812
  4. OLANZAPINE [Suspect]
     Active Substance: OLANZAPINE
     Indication: Product used for unknown indication
     Dosage: UNK
     Route: 065
     Dates: start: 201812, end: 201812
  5. RISPERIDONE [Suspect]
     Active Substance: RISPERIDONE
     Indication: Product used for unknown indication
     Dosage: UNK
     Route: 065
     Dates: start: 201812, end: 201812
  6. INVEGA [Suspect]
     Active Substance: PALIPERIDONE
     Indication: Product used for unknown indication
     Dosage: UNK
     Route: 065
     Dates: start: 201812, end: 201812
  7. DIAZEPAM [Concomitant]
     Active Substance: DIAZEPAM
     Indication: Product used for unknown indication
     Dosage: UNK
     Route: 065
     Dates: start: 201812, end: 201812
  8. FOLIC ACID [Concomitant]
     Active Substance: FOLIC ACID
     Indication: Product used for unknown indication
     Dosage: UNK
     Route: 065
     Dates: start: 201812, end: 201812
  9. FLUNITRAZEPAM [Concomitant]
     Active Substance: FLUNITRAZEPAM
     Indication: Product used for unknown indication
     Dosage: UNK
     Route: 065
     Dates: start: 201812, end: 201812
  10. TRAZODONE HYDROCHLORIDE [Concomitant]
     Active Substance: TRAZODONE HYDROCHLORIDE
     Indication: Product used for unknown indication
     Dosage: UNK
     Route: 065
     Dates: start: 201812, end: 201812
  11. LUNESTA [Concomitant]
     Active Substance: ESZOPICLONE
     Indication: Product used for unknown indication
     Dosage: UNK
     Route: 065
     Dates: start: 201812, end: 201812
  12. VITAMEDIN [BENFOTIAMINE;CYANOCOBALAMIN;PYRIDOXINE HYDROCHLORIDE] [Concomitant]
     Indication: Product used for unknown indication
     Dosage: UNK
     Route: 065
     Dates: start: 201812, end: 201812

REACTIONS (5)
  - Loss of personal independence in daily activities [Unknown]
  - Mastication disorder [Unknown]
  - Dysphagia [Unknown]
  - Tardive dyskinesia [Unknown]
  - Dystonia [Unknown]
